FAERS Safety Report 8130644-5 (Version None)
Quarter: 2012Q1

REPORT INFORMATION
  Report Type: 
  Country: None (occurrence: None)
  Receive Date: 20120213
  Receipt Date: 20120201
  Transmission Date: 20120608
  Serious: Yes (Hospitalization)
  Sender: FDA-Public Use
  Company Number: US-BIOGENIDEC-2011BI003006

PATIENT
  Age: 53 Year
  Sex: Female
  Weight: 69 kg

DRUGS (1)
  1. AVONEX [Suspect]
     Indication: MULTIPLE SCLEROSIS
     Route: 030
     Dates: start: 20060317

REACTIONS (17)
  - SINUSITIS [None]
  - FEELING HOT [None]
  - BALANCE DISORDER [None]
  - PAIN IN EXTREMITY [None]
  - FATIGUE [None]
  - UPPER RESPIRATORY TRACT INFECTION [None]
  - ORAL CANDIDIASIS [None]
  - INFLUENZA LIKE ILLNESS [None]
  - VERTIGO [None]
  - MULTIPLE SCLEROSIS RELAPSE [None]
  - DEPRESSION [None]
  - SUICIDAL IDEATION [None]
  - CERVICAL SPINAL STENOSIS [None]
  - HEADACHE [None]
  - EMOTIONAL DISORDER [None]
  - INTERVERTEBRAL DISC DISORDER [None]
  - MUSCLE SPASMS [None]
